FAERS Safety Report 5892802-X (Version None)
Quarter: 2008Q3

REPORT INFORMATION
  Report Type: 
  Country: None (occurrence: None)
  Receive Date: 20080919
  Receipt Date: 20060525
  Transmission Date: 20090109
  Serious: Yes (Other)
  Sender: FDA-Public Use
  Company Number: 2006-00407FE

PATIENT
  Age: 10 Year
  Sex: Male

DRUGS (3)
  1. DESMOMELT (MINIRIN ^FERRING^) (DESMOPRESSIN ACETATE) [Suspect]
     Indication: ENURESIS
     Dosage: 120 MCG/240 MCG, PO
     Route: 048
     Dates: end: 20060402
  2. DESMOMELT (MINIRIN ^FERRING^) (DESMOPRESSIN ACETATE) [Suspect]
     Indication: ENURESIS
     Dosage: 120 MCG/240 MCG, PO
     Route: 048
     Dates: start: 20060403, end: 20060403
  3. OXYBUTYNIN [Concomitant]

REACTIONS (2)
  - HALLUCINATION [None]
  - RASH GENERALISED [None]
